FAERS Safety Report 7626657-X (Version None)
Quarter: 2011Q3

REPORT INFORMATION
  Report Type: 
  Country: None (occurrence: None)
  Receive Date: 20110721
  Receipt Date: 20110601
  Transmission Date: 20111222
  Serious: No
  Sender: FDA-Public Use
  Company Number: US-NOVEN-11US002556

PATIENT
  Sex: Female

DRUGS (3)
  1. FENTANYL [Suspect]
     Indication: PAIN
     Dosage: 25 UG, Q 48 HOURS
     Route: 062
     Dates: start: 20110501
  2. FENTANYL [Suspect]
     Dosage: 25 UG, Q 72 HOURS
     Route: 062
     Dates: start: 20110401, end: 20110501
  3. FENTANYL [Suspect]
     Dosage: UNK
     Route: 062
     Dates: end: 20110401

REACTIONS (1)
  - INADEQUATE ANALGESIA [None]
